FAERS Safety Report 15965478 (Version 1)
Quarter: 2019Q1

REPORT INFORMATION
  Report Type: Spontaneous
  Country: GB (occurrence: GB)
  Receive Date: 20190215
  Receipt Date: 20190215
  Transmission Date: 20190418
  Serious: Yes (Hospitalization)
  Sender: FDA-Public Use
  Company Number: GB-AUROBINDO-AUR-APL-2019-008092

PATIENT

DRUGS (31)
  1. CLEXANE [Concomitant]
     Active Substance: ENOXAPARIN SODIUM
     Dosage: 40 MILLIGRAM, ONCE A DAY
     Route: 048
     Dates: start: 20170324, end: 20170327
  2. PARACETAMOL [Concomitant]
     Active Substance: ACETAMINOPHEN
     Indication: ANALGESIC THERAPY
     Dosage: 200 MILLIGRAM, ONCE A DAY
     Route: 048
  3. ASPIRIN. [Concomitant]
     Active Substance: ASPIRIN
     Dosage: 300 MILLIGRAM, ONCE A DAY
     Route: 048
     Dates: start: 20150718, end: 20150718
  4. METFORMIN [Concomitant]
     Active Substance: METFORMIN HYDROCHLORIDE
     Indication: TYPE 2 DIABETES MELLITUS
     Dosage: 1 GRAM, DAILY
     Route: 048
     Dates: start: 20170331
  5. CYANOCOBALAMIN. [Concomitant]
     Active Substance: CYANOCOBALAMIN
     Indication: VITAMIN B COMPLEX DEFICIENCY
     Dosage: 50 MICROGRAM, DAILY
     Route: 048
     Dates: start: 20161013
  6. RAMIPRIL. [Suspect]
     Active Substance: RAMIPRIL
     Indication: HYPERTENSION
     Dosage: 10 MILLIGRAM, ONCE A DAY
     Route: 065
  7. CLEXANE [Concomitant]
     Active Substance: ENOXAPARIN SODIUM
     Indication: THROMBOSIS PROPHYLAXIS
     Dosage: 40 MILLIGRAM, ONCE A DAY
     Route: 048
     Dates: start: 20180131, end: 20180204
  8. TABPHYN MR [Concomitant]
     Active Substance: TAMSULOSIN HYDROCHLORIDE
     Indication: BENIGN PROSTATIC HYPERPLASIA
     Dosage: 40 MICROGRAM, ONCE A DAY
     Route: 048
  9. ADCAL [Concomitant]
     Active Substance: CALCIUM CARBONATE
     Indication: VITAMIN D DEFICIENCY
     Dosage: 1500 MILLIGRAM, ONCE A DAY
     Route: 048
  10. LAXIDO [Concomitant]
     Active Substance: POLYETHYLENE GLYCOL 3350\POTASSIUM CHLORIDE\SODIUM BICARBONATE\SODIUM CHLORIDE
     Indication: CONSTIPATION
     Dosage: UNK
     Route: 048
  11. AMLODIPINE [Suspect]
     Active Substance: AMLODIPINE BESYLATE
     Indication: ANGINA PECTORIS
     Dosage: 5 MILLIGRAM, ONCE A DAY
     Route: 065
     Dates: start: 20150817, end: 20180202
  12. TICAGRELOR. [Suspect]
     Active Substance: TICAGRELOR
     Dosage: 60 MILLIGRAM, TWO TIMES A DAY
     Route: 065
     Dates: start: 20151102
  13. NICORANDIL [Concomitant]
     Active Substance: NICORANDIL
     Indication: ANGINA PECTORIS
     Dosage: 10 MILLIGRAM, ONCE A DAY
     Route: 048
     Dates: start: 20170820, end: 20180709
  14. GTN [Concomitant]
     Active Substance: NITROGLYCERIN
     Indication: ANGINA PECTORIS
     Dosage: UNK
     Route: 060
  15. SIMVASTATIN. [Concomitant]
     Active Substance: SIMVASTATIN
     Indication: HYPERCHOLESTEROLAEMIA
     Dosage: 20 MILLIGRAM, ONCE A DAY
     Route: 048
     Dates: start: 20150421
  16. RAMIPRIL. [Suspect]
     Active Substance: RAMIPRIL
     Dosage: 5 MILLIGRAM, ONCE A DAY
     Route: 065
     Dates: start: 20180205
  17. ASPIRIN. [Concomitant]
     Active Substance: ASPIRIN
     Indication: CORONARY ARTERY DISEASE
     Dosage: 75 MILLIGRAM, ONCE A DAY
     Route: 048
     Dates: start: 20150718
  18. FUROSEMIDE. [Concomitant]
     Active Substance: FUROSEMIDE
     Indication: DYSPNOEA
     Dosage: 40 MILLIGRAM, ONCE A DAY
     Route: 048
     Dates: start: 20170809
  19. TICAGRELOR. [Suspect]
     Active Substance: TICAGRELOR
     Dosage: 60 MILLIGRAM, TWO TIMES A DAY
     Route: 065
     Dates: start: 20180904
  20. NICORANDIL [Concomitant]
     Active Substance: NICORANDIL
     Dosage: 60 MILLIGRAM, ONCE A DAY
     Route: 048
     Dates: start: 20170809
  21. FINASTERIDE. [Concomitant]
     Active Substance: FINASTERIDE
     Indication: BENIGN PROSTATIC HYPERPLASIA
     Dosage: 5 MILLIGRAM, ONCE A DAY
     Route: 048
     Dates: start: 20160115
  22. GAVISCON ADVANCED [Concomitant]
     Indication: DYSPEPSIA
     Dosage: 20 MILLILITER, ONCE A DAY
     Route: 048
  23. OMEPRAZOLE. [Concomitant]
     Active Substance: OMEPRAZOLE
     Indication: DYSPEPSIA
     Dosage: 40 MILLIGRAM, ONCE A DAY
     Route: 048
  24. DOXYCYCLINE. [Concomitant]
     Active Substance: DOXYCYCLINE
     Indication: PROSTATIC DISORDER
     Dosage: 100 MILLIGRAM, ONCE A DAY
     Route: 048
     Dates: start: 20170420
  25. METFORMIN [Concomitant]
     Active Substance: METFORMIN HYDROCHLORIDE
     Dosage: 1000 MILLIGRAM, ONCE A DAY
     Route: 048
     Dates: start: 20170324
  26. TICAGRELOR. [Suspect]
     Active Substance: TICAGRELOR
     Indication: CARDIOVASCULAR EVENT PROPHYLAXIS
     Dosage: 90 MILLIGRAM, TWO TIMES A DAY
     Route: 065
     Dates: start: 20150505, end: 20151102
  27. FERROUS GLUCONATE [Concomitant]
     Active Substance: FERROUS GLUCONATE
     Indication: IRON DEFICIENCY ANAEMIA
     Dosage: 300 MILLIGRAM, ONCE A DAY
     Route: 048
  28. LOCOID [Concomitant]
     Active Substance: HYDROCORTISONE BUTYRATE
     Indication: ECZEMA
     Dosage: UNK
     Route: 065
  29. FOLIC ACID. [Concomitant]
     Active Substance: FOLIC ACID
     Indication: FOLATE DEFICIENCY
     Dosage: UNK, ONCE A DAY
     Route: 048
     Dates: start: 20170820
  30. CITALOPRAM [Concomitant]
     Active Substance: CITALOPRAM HYDROBROMIDE
     Indication: DEPRESSION
     Dosage: 20 MILLIGRAM, ONCE A DAY
     Route: 065
  31. VESICARE [Concomitant]
     Active Substance: SOLIFENACIN SUCCINATE
     Indication: NOCTURIA
     Dosage: 10 MILLIGRAM, ONCE A DAY
     Route: 048
     Dates: start: 20160801, end: 20180205

REACTIONS (2)
  - Non-cardiac chest pain [Recovered/Resolved]
  - Orthostatic hypotension [Recovered/Resolved]

NARRATIVE: CASE EVENT DATE: 20180131
